FAERS Safety Report 4752232-0 (Version None)
Quarter: 2005Q3

REPORT INFORMATION
  Report Type: 
  Country: None (occurrence: None)
  Receive Date: 20050822
  Receipt Date: 20050822
  Transmission Date: 20060218
  Serious: Yes (Hospitalization, Other)
  Sender: FDA-Public Use
  Company Number: None

PATIENT
  Sex: Male
  Weight: 85.27 kg

DRUGS (8)
  1. IDARUBICIN HCL [Suspect]
     Indication: ACUTE MYELOID LEUKAEMIA
     Dosage: SEE IMAGE
     Route: 042
     Dates: start: 20050712, end: 20050714
  2. CYTARABINE [Suspect]
     Dosage: SEE IMAGE
     Route: 042
     Dates: start: 20050712, end: 20050715
  3. DARVON [Concomitant]
  4. KAY CIEL DURA-TABS [Concomitant]
  5. LEVAQUIN [Concomitant]
  6. NEXIUM [Concomitant]
  7. VALTREX [Concomitant]
  8. VORICONAZOLE [Concomitant]

REACTIONS (4)
  - ASTHENIA [None]
  - BACK PAIN [None]
  - FEBRILE NEUTROPENIA [None]
  - PHARYNGOLARYNGEAL PAIN [None]
